FAERS Safety Report 7983632-3 (Version None)
Quarter: 2011Q4

REPORT INFORMATION
  Report Type: 
  Country: None (occurrence: None)
  Receive Date: 20111215
  Receipt Date: 20111202
  Transmission Date: 20120403
  Serious: Yes (Other)
  Sender: FDA-Public Use
  Company Number: PHHY2011DK103361

PATIENT
  Sex: Male
  Weight: 70 kg

DRUGS (6)
  1. CLOZAPINE [Suspect]
     Indication: SCHIZOPHRENIA
     Dosage: 75 + 0 + 0 + 200 MG (EARLIER REPORTED AS 300 MG)
     Route: 048
     Dates: start: 20110720
  2. CLOZAPINE [Suspect]
     Dosage: 275 MG, DAILY
  3. SERTRALINE HYDROCHLORIDE [Concomitant]
     Indication: DEPRESSION
     Dosage: 100 + 0 + 0 + 0 MG
     Route: 048
     Dates: start: 20110804
  4. VALPROATE SODIUM [Concomitant]
     Indication: MYOCLONIC EPILEPSY
     Dosage: 1000 MG, IN THE EVENING
     Route: 048
     Dates: start: 20111123
  5. CLOZAPINE [Suspect]
     Dates: start: 20111122
  6. DISULFIRAM [Concomitant]
     Indication: ALCOHOL ABUSE
     Dosage: 800 MG, MONDAYS AND THURSDAYS
     Dates: start: 20101213

REACTIONS (3)
  - CONVULSION [None]
  - ANTIPSYCHOTIC DRUG LEVEL BELOW THERAPEUTIC [None]
  - MYOCLONIC EPILEPSY [None]
